FAERS Safety Report 7103415 (Version 3)
Quarter: 2012Q4

REPORT INFORMATION
  Report Type: 
  Country: ES (occurrence: ES)
  Receive Date: 20090902
  Receipt Date: 20121101
  Transmission Date: 20130627
  Serious: Yes (Death, Hospitalization, Other)
  Sender: FDA-Public Use
  Company Number: ES-MERCK-0908ESP00017

PATIENT
  Age: 15 Year
  Sex: Male

DRUGS (5)
  1. CASPOFUNGIN ACETATE [Suspect]
     Indication: LUNG INFECTION
     Dosage: 50 mg, qd
     Route: 042
     Dates: start: 200905, end: 20090602
  2. CEFEPIME [Suspect]
     Indication: LUNG INFECTION
     Dosage: 2 g, bid
     Route: 042
     Dates: start: 200905, end: 20090602
  3. ADALAT OROS [Suspect]
     Indication: HYPERTENSION
     Dosage: 30 mg, qd
     Route: 048
     Dates: start: 200905, end: 20090602
  4. KEPPRA [Suspect]
     Indication: CONVULSION PROPHYLAXIS
     Dosage: 1000 mg, bid
     Route: 048
     Dates: start: 200903, end: 20090602
  5. SIMULECT [Suspect]
     Indication: GRAFT VERSUS HOST DISEASE
     Dosage: 20 mg, tid
     Route: 042
     Dates: start: 200904, end: 200905

REACTIONS (1)
  - Toxic epidermal necrolysis [Fatal]
